FAERS Safety Report 9119467 (Version 2)
Quarter: 2013Q2

REPORT INFORMATION
  Report Type: Spontaneous
  Country: US (occurrence: US)
  Receive Date: 20130226
  Receipt Date: 20130404
  Transmission Date: 20140414
  Serious: Yes (Other)
  Sender: FDA-Public Use
  Company Number: US-009507513-1302USA011217

PATIENT
  Age: 32 Year
  Sex: Female

DRUGS (6)
  1. SINGULAIR [Suspect]
     Indication: RHINITIS ALLERGIC
     Dosage: 10 MG, QD
     Route: 048
     Dates: start: 2008
  2. FLONASE [Concomitant]
  3. ALLEGRA [Concomitant]
  4. PROBIOTICS (UNSPECIFIED) [Concomitant]
  5. PREVACID [Concomitant]
  6. BROMOCRIPTINE [Concomitant]

REACTIONS (3)
  - Abortion spontaneous [Unknown]
  - Exposure during pregnancy [Recovered/Resolved]
  - Uterine dilation and curettage [Unknown]
